FAERS Safety Report 6986845-2 (Version None)
Quarter: 2010Q3

REPORT INFORMATION
  Report Type: 
  Country: None (occurrence: None)
  Receive Date: 20100915
  Receipt Date: 20090804
  Transmission Date: 20110219
  Serious: No
  Sender: FDA-Public Use
  Company Number: US-WYE-H10444709

PATIENT
  Sex: Male
  Weight: 83.54 kg

DRUGS (6)
  1. PRISTIQ [Suspect]
     Indication: DEPRESSION
     Route: 048
     Dates: start: 20090101
  2. COUMADIN [Suspect]
     Route: 065
     Dates: end: 20090804
  3. COUMADIN [Suspect]
     Route: 065
     Dates: start: 20090805
  4. ZETIA [Concomitant]
  5. CRESTOR [Concomitant]
  6. TRICOR [Concomitant]

REACTIONS (3)
  - CONTUSION [None]
  - FALL [None]
  - INTERNATIONAL NORMALISED RATIO INCREASED [None]
